FAERS Safety Report 19775096 (Version 1)
Quarter: 2021Q3

REPORT INFORMATION
  Report Type: Spontaneous
  Country: BR (occurrence: BR)
  Receive Date: 20210901
  Receipt Date: 20210901
  Transmission Date: 20211014
  Serious: Yes (Other)
  Sender: FDA-Public Use
  Company Number: BR-AMERICAN REGENT INC-2021002284

PATIENT
  Sex: Female
  Weight: 53 kg

DRUGS (5)
  1. VENOFER [Suspect]
     Active Substance: IRON SUCROSE
     Indication: SERUM FERRITIN DECREASED
     Dosage: 100 MG/5 ML, 2 VIALS DILUTED IN 200 ML OR 250 ML OF NORMAL SALINE
     Route: 042
  2. OMEGA 3                            /01334101/ [Concomitant]
     Active Substance: OMEGA-3 FATTY ACIDS
     Indication: PRODUCT USED FOR UNKNOWN INDICATION
     Dosage: UNK
     Route: 065
  3. VITAMIN D                          /00107901/ [Concomitant]
     Active Substance: ERGOCALCIFEROL
     Indication: PRODUCT USED FOR UNKNOWN INDICATION
     Dosage: UNK
     Route: 065
  4. VENOFER [Suspect]
     Active Substance: IRON SUCROSE
     Dosage: 100 MG/5 ML, 2 VIALS DILUTED IN 200 ML OR 250 ML OF NORMAL SALINE
     Route: 048
     Dates: end: 20201222
  5. VENOFER [Suspect]
     Active Substance: IRON SUCROSE
     Dosage: 100 MG/5 ML, 2 VIALS DILUTED IN 200 ML OR 250 ML OF NORMAL SALINE
     Route: 042

REACTIONS (15)
  - Arrhythmia [Unknown]
  - Fall [Recovered/Resolved]
  - Drug ineffective [Unknown]
  - Amnesia [Unknown]
  - Chills [Recovered/Resolved]
  - Arthralgia [Recovered/Resolved]
  - Nausea [Recovered/Resolved]
  - Vomiting [Recovered/Resolved]
  - Bone pain [Recovered/Resolved]
  - Incorrect route of product administration [Unknown]
  - Asthenia [Unknown]
  - Fatigue [Unknown]
  - Dizziness [Recovered/Resolved]
  - Pyrexia [Recovered/Resolved]
  - Pain in extremity [Unknown]
